FAERS Safety Report 11555494 (Version 1)
Quarter: 2015Q3

REPORT INFORMATION
  Report Type: Report from Study
  Country: DE (occurrence: DE)
  Receive Date: 20150925
  Receipt Date: 20150925
  Transmission Date: 20151125
  Serious: Yes (Hospitalization, Other)
  Sender: FDA-Public Use
  Company Number: DE-GILEAD-2015-0172181

PATIENT
  Age: 75 Year
  Sex: Female
  Weight: 80 kg

DRUGS (7)
  1. L-THYROXINE                        /00068001/ [Concomitant]
     Active Substance: LEVOTHYROXINE
  2. SPIRONOLACTON [Concomitant]
     Active Substance: SPIRONOLACTONE
  3. TORASEMID [Concomitant]
     Active Substance: TORSEMIDE
  4. PROPRANOLOL [Concomitant]
     Active Substance: PROPRANOLOL\PROPRANOLOL HYDROCHLORIDE
  5. CANDESARTAN [Concomitant]
     Active Substance: CANDESARTAN
  6. LEDIPASVIR/SOFOSBUVIR [Suspect]
     Active Substance: LEDIPASVIR\SOFOSBUVIR
     Indication: CHRONIC HEPATITIS C
     Dosage: 1 DF, QD
     Route: 048
     Dates: start: 20150113, end: 20150623
  7. AMLODIPIN                          /00972401/ [Concomitant]
     Active Substance: AMLODIPINE BESYLATE

REACTIONS (1)
  - Angina pectoris [Recovered/Resolved]

NARRATIVE: CASE EVENT DATE: 20150423
